FAERS Safety Report 16216621 (Version 1)
Quarter: 2019Q2

REPORT INFORMATION
  Report Type: Spontaneous
  Country: CZ (occurrence: CZ)
  Receive Date: 20190419
  Receipt Date: 20190419
  Transmission Date: 20190711
  Serious: Yes (Other)
  Sender: FDA-Public Use
  Company Number: PHHY2019CZ085774

PATIENT
  Age: 3 Year
  Sex: Male
  Weight: 15 kg

DRUGS (1)
  1. OSPEN [Suspect]
     Active Substance: PENICILLIN V
     Indication: PHARYNGOTONSILLITIS
     Dosage: 2.5 ML, Q8H
     Route: 048
     Dates: start: 20190318, end: 20190327

REACTIONS (1)
  - Device colour issue [Not Recovered/Not Resolved]

NARRATIVE: CASE EVENT DATE: 20190325
